FAERS Safety Report 13048213 (Version 4)
Quarter: 2020Q4

REPORT INFORMATION
  Report Type: Spontaneous
  Country: US (occurrence: US)
  Receive Date: 20161220
  Receipt Date: 20201102
  Transmission Date: 20210113
  Serious: No
  Sender: FDA-Public Use
  Company Number: US-BIOMARINAP-US-2015-106427

PATIENT
  Age: 14 Year
  Sex: Male
  Weight: 64.56 kg

DRUGS (2)
  1. ALDURAZYME [Suspect]
     Active Substance: LARONIDASE
     Indication: MUCOPOLYSACCHARIDOSIS I
     Dosage: 0.58 MILLIGRAM
     Route: 041
     Dates: start: 20070808
  2. BENADRYL [Suspect]
     Active Substance: DIPHENHYDRAMINE HYDROCHLORIDE
     Indication: PRODUCT USED FOR UNKNOWN INDICATION
     Dosage: UNK
     Route: 065
     Dates: start: 201510

REACTIONS (10)
  - Fatigue [Unknown]
  - Rash [Recovered/Resolved]
  - Injection site urticaria [Unknown]
  - Injection site mass [Unknown]
  - Hypertension [Unknown]
  - Visual impairment [Unknown]
  - Injection site erythema [Unknown]
  - Pyrexia [Unknown]
  - Feeling abnormal [Unknown]
  - Incorrect dose administered [Unknown]

NARRATIVE: CASE EVENT DATE: 20150512
